FAERS Safety Report 8828811 (Version 1)
Quarter: 2012Q4

REPORT INFORMATION
  Report Type: 
  Country: US (occurrence: US)
  Receive Date: 20121008
  Receipt Date: 20121008
  Transmission Date: 20130627
  Serious: No
  Sender: FDA-Public Use
  Company Number: US-ASTRAZENECA-2012SE73951

PATIENT
  Age: 74 Year
  Sex: Female
  Weight: 49.4 kg

DRUGS (3)
  1. OMEPRAZOLE [Suspect]
     Route: 048
     Dates: start: 2010, end: 2010
  2. SIMVASTATIN [Concomitant]
     Indication: BLOOD CHOLESTEROL INCREASED
  3. CHLORTHALIDONE [Concomitant]
     Indication: HYPERTENSION

REACTIONS (7)
  - Duodenal ulcer [Unknown]
  - Diarrhoea [Unknown]
  - Dysgeusia [Unknown]
  - Abdominal discomfort [Unknown]
  - Eructation [Unknown]
  - Malaise [Unknown]
  - Insomnia [Unknown]
